FAERS Safety Report 4639454-4 (Version None)
Quarter: 2005Q2

REPORT INFORMATION
  Report Type: 
  Country: None (occurrence: None)
  Receive Date: 20050418
  Receipt Date: 20050401
  Transmission Date: 20051028
  Serious: Yes (Hospitalization)
  Sender: FDA-Public Use
  Company Number: 106338ISR

PATIENT
  Age: 52 Year
  Sex: Male

DRUGS (3)
  1. FLUOROURACIL [Suspect]
     Dosage: INTRAVENOUS (NOS),
     Route: 042
     Dates: start: 20041105
  2. CISPLATIN [Suspect]
  3. CALCIUM FOLINATE [Suspect]

REACTIONS (5)
  - EATING DISORDER [None]
  - FEBRILE NEUTROPENIA [None]
  - MUCOSAL INFLAMMATION [None]
  - THERAPY NON-RESPONDER [None]
  - WHITE BLOOD CELL COUNT DECREASED [None]
